FAERS Safety Report 5072189-5 (Version None)
Quarter: 2006Q3

REPORT INFORMATION
  Report Type: 
  Country: None (occurrence: None)
  Receive Date: 20060710
  Receipt Date: 20060310
  Transmission Date: 20061208
  Serious: Yes (Other)
  Sender: FDA-Public Use
  Company Number: 2006US000357

PATIENT
  Age: 89 Year
  Sex: Female
  Weight: 65.8 kg

DRUGS (8)
  1. ADENOSCAN [Suspect]
     Indication: SCAN MYOCARDIAL PERFUSION
     Dosage: 55.5 MG, TOTAL DOSE, IV NOS
     Route: 042
     Dates: start: 20051213, end: 20051213
  2. MYOVIEW (ZINC CHLORIDE, TETROFOSMIN) [Concomitant]
  3. LOTREL [Concomitant]
  4. AMBIEN [Concomitant]
  5. TYLENOL [Concomitant]
  6. COREG [Concomitant]
  7. ACTOS /USA/ (PIOGLITAZONE HYDROCHLORIDE) [Concomitant]
  8. LIPITOR [Concomitant]

REACTIONS (1)
  - BLOOD PRESSURE INCREASED [None]
